FAERS Safety Report 12350073 (Version 1)
Quarter: 2016Q2

REPORT INFORMATION
  Report Type: Spontaneous
  Country: BR (occurrence: BR)
  Receive Date: 20160510
  Receipt Date: 20160510
  Transmission Date: 20160815
  Serious: Yes (Hospitalization)
  Sender: FDA-Public Use
  Company Number: BR-ROCHE-1749631

PATIENT
  Age: 87 Year
  Sex: Female
  Weight: 43 kg

DRUGS (9)
  1. NATRILIX [Concomitant]
     Active Substance: INDAPAMIDE
     Dosage: DIURETIC, STARTED MORETHAN ONE YEAR PRIOR TO THIS REPORT
     Route: 065
  2. LOSARTAN. [Concomitant]
     Active Substance: LOSARTAN
     Indication: CARDIAC DISORDER
     Route: 065
     Dates: start: 2014
  3. RIVOTRIL [Suspect]
     Active Substance: CLONAZEPAM
     Indication: DEPRESSION
     Dosage: DROPS
     Route: 065
     Dates: start: 2000
  4. RIVOTRIL [Interacting]
     Active Substance: CLONAZEPAM
     Dosage: DROPS
     Route: 065
  5. LORAX [Interacting]
     Active Substance: LORAZEPAM
     Indication: PRODUCT USED FOR UNKNOWN INDICATION
     Route: 065
  6. EPAREMA [Concomitant]
  7. BOLDO LEAF [Concomitant]
     Active Substance: PEUMUS BOLDUS LEAF
  8. RIVOTRIL [Interacting]
     Active Substance: CLONAZEPAM
     Dosage: DROPS
     Route: 065
  9. LOSARTAN. [Concomitant]
     Active Substance: LOSARTAN
     Indication: ILL-DEFINED DISORDER

REACTIONS (15)
  - Cataract [Not Recovered/Not Resolved]
  - Fall [Unknown]
  - Abdominal discomfort [Not Recovered/Not Resolved]
  - Intentional product use issue [Unknown]
  - Pain [Unknown]
  - Tinnitus [Not Recovered/Not Resolved]
  - Thyroid disorder [Unknown]
  - Dizziness [Not Recovered/Not Resolved]
  - Drug dose omission [Unknown]
  - Labelled drug-drug interaction medication error [Unknown]
  - Dysstasia [Not Recovered/Not Resolved]
  - Head discomfort [Not Recovered/Not Resolved]
  - Incorrect dose administered [Unknown]
  - Medication error [Unknown]
  - Asthenia [Not Recovered/Not Resolved]

NARRATIVE: CASE EVENT DATE: 201510
